FAERS Safety Report 9484336 (Version 1)
Quarter: 2013Q3

REPORT INFORMATION
  Report Type: Spontaneous
  Country: AU (occurrence: AU)
  Receive Date: 20130828
  Receipt Date: 20130828
  Transmission Date: 20140515
  Serious: Yes (Hospitalization)
  Sender: FDA-Public Use
  Company Number: AU-ASTRAZENECA-2013SE64582

PATIENT
  Age: 11132 Day
  Sex: Female

DRUGS (5)
  1. SEROQUEL XR [Suspect]
     Indication: SLEEP DISORDER
     Route: 048
  2. SEROQUEL XR [Suspect]
     Indication: SLEEP DISORDER
     Route: 048
     Dates: start: 20130502
  3. EFEXOR XR [Suspect]
     Indication: DEPRESSION
  4. EFEXOR XR [Suspect]
     Indication: DEPRESSION
     Dates: start: 20130502
  5. EFEXOR XR [Suspect]
     Indication: DEPRESSION

REACTIONS (4)
  - Toxicity to various agents [Not Recovered/Not Resolved]
  - Hyperhidrosis [Not Recovered/Not Resolved]
  - Agitation [Not Recovered/Not Resolved]
  - Muscle rigidity [Not Recovered/Not Resolved]
